FAERS Safety Report 4995207-9 (Version None)
Quarter: 2006Q2

REPORT INFORMATION
  Report Type: 
  Country: None (occurrence: None)
  Receive Date: 20060508
  Receipt Date: 20050718
  Transmission Date: 20061013
  Serious: Yes (Death, Other)
  Sender: FDA-Public Use
  Company Number: US-MERCK-0507USA03062

PATIENT
  Age: 72 Year
  Sex: Male
  Weight: 82 kg

DRUGS (5)
  1. VIOXX [Suspect]
     Indication: ARTHRITIS
     Route: 048
     Dates: start: 20020101, end: 20030101
  2. VIOXX [Suspect]
     Route: 048
     Dates: start: 20000101
  3. GLUCOPHAGE [Concomitant]
     Route: 065
  4. HYZAAR [Concomitant]
     Route: 048
  5. GLUCOTROL [Concomitant]
     Route: 065

REACTIONS (2)
  - CEREBROVASCULAR ACCIDENT [None]
  - DEATH [None]
